FAERS Safety Report 10188896 (Version 2)
Quarter: 2014Q2

REPORT INFORMATION
  Report Type: Spontaneous
  Country: US (occurrence: US)
  Receive Date: 20140522
  Receipt Date: 20140630
  Transmission Date: 20141212
  Serious: No
  Sender: FDA-Public Use
  Company Number: US-PFIZER INC-2014138766

PATIENT
  Sex: Female

DRUGS (1)
  1. NEURONTIN [Suspect]
     Dosage: UNK

REACTIONS (6)
  - Vertigo [Unknown]
  - Drug intolerance [Unknown]
  - Impaired work ability [Unknown]
  - Pain [Unknown]
  - Insomnia [Unknown]
  - Dizziness [Unknown]
